FAERS Safety Report 19864854 (Version 1)
Quarter: 2021Q3

REPORT INFORMATION
  Report Type: Spontaneous
  Country: US (occurrence: US)
  Receive Date: 20210922
  Receipt Date: 20210922
  Transmission Date: 20211014
  Serious: Yes (Hospitalization, Other)
  Sender: FDA-Public Use
  Company Number: US-LUPIN PHARMACEUTICALS INC.-2021-17823

PATIENT
  Age: 71 Year
  Sex: Male

DRUGS (10)
  1. RIFAMPIN. [Suspect]
     Active Substance: RIFAMPIN
     Indication: CYSTITIS
  2. ETHAMBUTOL [Suspect]
     Active Substance: ETHAMBUTOL HYDROCHLORIDE
     Indication: DISSEMINATED BACILLUS CALMETTE-GUERIN INFECTION
     Dosage: UNK
     Route: 065
     Dates: start: 201909, end: 202003
  3. VACCINE, BACILLUS CALMETTE?GUERIN [Concomitant]
     Active Substance: BCG VACCINE
     Dosage: UNK MAINTENANCE COURSE
     Route: 043
     Dates: start: 201902
  4. RIFAMPIN. [Suspect]
     Active Substance: RIFAMPIN
     Indication: DISSEMINATED BACILLUS CALMETTE-GUERIN INFECTION
     Dosage: UNK
     Route: 065
     Dates: start: 201909, end: 202003
  5. ISONIAZID. [Suspect]
     Active Substance: ISONIAZID
     Indication: DISSEMINATED BACILLUS CALMETTE-GUERIN INFECTION
     Dosage: UNK
     Route: 065
     Dates: start: 201909, end: 202003
  6. RIFAMPIN. [Suspect]
     Active Substance: RIFAMPIN
     Indication: DISSEMINATED BACILLUS CALMETTE-GUERIN INFECTION
     Dosage: UNK 3 WEEK COURSE
     Route: 065
     Dates: start: 201904
  7. ISONIAZID. [Suspect]
     Active Substance: ISONIAZID
     Indication: DISSEMINATED BACILLUS CALMETTE-GUERIN INFECTION
     Dosage: UNK 3 WEEK COURSE
     Route: 065
     Dates: start: 201904
  8. VACCINE, BACILLUS CALMETTE?GUERIN [Concomitant]
     Active Substance: BCG VACCINE
     Indication: TRANSITIONAL CELL CARCINOMA
     Dosage: UNK FIRST THERAPEUTIC COURSE
     Route: 043
     Dates: start: 201807, end: 201808
  9. VACCINE, BACILLUS CALMETTE?GUERIN [Concomitant]
     Active Substance: BCG VACCINE
     Dosage: UNK SECOND THERAPEUTIC COURSE
     Route: 043
     Dates: start: 201810
  10. ISONIAZID. [Suspect]
     Active Substance: ISONIAZID
     Indication: CYSTITIS

REACTIONS (4)
  - Parapharyngeal space infection [Recovering/Resolving]
  - Tuberculosis [Recovering/Resolving]
  - Paradoxical drug reaction [Recovering/Resolving]
  - Neck mass [Recovering/Resolving]
